FAERS Safety Report 6955648-7 (Version None)
Quarter: 2010Q3

REPORT INFORMATION
  Report Type: 
  Country: None (occurrence: None)
  Receive Date: 20100830
  Receipt Date: 20100824
  Transmission Date: 20110219
  Serious: Yes (Hospitalization)
  Sender: FDA-Public Use
  Company Number: JP-PFIZER INC-2010106187

PATIENT
  Age: 63 Year
  Sex: Male

DRUGS (3)
  1. AZULFIDINE [Suspect]
     Indication: MYOSITIS
     Dosage: 500 MG, 1X/DAY
     Route: 048
     Dates: start: 20100801, end: 20100818
  2. AZULFIDINE [Suspect]
     Dosage: 500 MG, 2X/DAY
     Route: 048
     Dates: start: 20100819, end: 20100819
  3. PREDNISOLONE [Concomitant]
     Dosage: UNK

REACTIONS (1)
  - OCULOMUCOCUTANEOUS SYNDROME [None]
